FAERS Safety Report 5720654-7 (Version None)
Quarter: 2008Q2

REPORT INFORMATION
  Report Type: 
  Country: None (occurrence: None)
  Receive Date: 20080425
  Receipt Date: 20080425
  Transmission Date: 20081010
  Serious: Yes (Life-Threatening, Hospitalization)
  Sender: FDA-Public Use
  Company Number: None

PATIENT
  Age: 75 Year
  Sex: Male
  Weight: 67 kg

DRUGS (1)
  1. LINEZOLID [Suspect]
     Indication: BACTERAEMIA
     Dosage: 600MG TWICE A DAY PO
     Route: 048
     Dates: start: 20080316, end: 20080331

REACTIONS (2)
  - ASTHENIA [None]
  - PLATELET COUNT DECREASED [None]
